FAERS Safety Report 15476000 (Version 1)
Quarter: 2018Q4

REPORT INFORMATION
  Report Type: Spontaneous
  Country: NO (occurrence: NO)
  Receive Date: 20181009
  Receipt Date: 20181009
  Transmission Date: 20190205
  Serious: Yes (Hospitalization)
  Sender: FDA-Public Use
  Company Number: PHHY2018NO119060

PATIENT
  Age: 61 Year
  Sex: Male

DRUGS (1)
  1. METHOTREXATE. [Suspect]
     Active Substance: METHOTREXATE
     Indication: POLYARTHRITIS
     Dosage: 15 MG, QD (HE WAS SUPPOSED TO RECEIVE 15 MG PER WEEK, BUT INSTEAD HE TOOK 15 MG PER DAY FOR 2 WEEKS)
     Route: 048
     Dates: start: 20180511, end: 20180525

REACTIONS (5)
  - Renal failure [Recovering/Resolving]
  - Medication error [Recovering/Resolving]
  - Stomatitis [Recovering/Resolving]
  - Superinfection [Recovering/Resolving]
  - Cytopenia [Recovering/Resolving]

NARRATIVE: CASE EVENT DATE: 20180511
